FAERS Safety Report 24424973 (Version 1)
Quarter: 2024Q4

REPORT INFORMATION
  Report Type: Spontaneous
  Country: US (occurrence: US)
  Receive Date: 20241010
  Receipt Date: 20241010
  Transmission Date: 20250114
  Serious: No
  Sender: INSUD PHARMA
  Company Number: US-INSUD PHARMA-2409US07488

PATIENT

DRUGS (2)
  1. FOSFOMYCIN [Suspect]
     Active Substance: FOSFOMYCIN
     Indication: Prophylaxis urinary tract infection
     Dosage: 1 PACKET EVERY THURSDAY
     Route: 048
  2. FOSFOMYCIN [Suspect]
     Active Substance: FOSFOMYCIN
     Indication: Cystitis klebsiella

REACTIONS (2)
  - Fatigue [Unknown]
  - Product prescribing issue [Unknown]
